FAERS Safety Report 15074984 (Version 1)
Quarter: 2018Q2

REPORT INFORMATION
  Report Type: Report from Study
  Country: US (occurrence: US)
  Receive Date: 20180627
  Receipt Date: 20180627
  Transmission Date: 20180711
  Serious: Yes (Other)
  Sender: FDA-Public Use
  Company Number: US-SAOL THERAPEUTICS-0700695334

PATIENT
  Sex: Male

DRUGS (2)
  1. LIORESAL [Suspect]
     Active Substance: BACLOFEN
     Indication: MUSCLE SPASTICITY
     Dosage: 255 ?G, \DAY
  2. LIORESAL [Suspect]
     Active Substance: BACLOFEN
     Dosage: 374.9 MCG/DAY

REACTIONS (3)
  - Muscle spasms [Recovered/Resolved]
  - Device damage [Recovered/Resolved]
  - Drug withdrawal syndrome [Recovered/Resolved]
